FAERS Safety Report 21224179 (Version 1)
Quarter: 2022Q3

REPORT INFORMATION
  Report Type: Report from Study
  Country: DE (occurrence: DE)
  Receive Date: 20220817
  Receipt Date: 20220817
  Transmission Date: 20221027
  Serious: Yes (Hospitalization, Other)
  Sender: FDA-Public Use
  Company Number: DE-MYLANLABS-2022M1083216

PATIENT
  Sex: Male

DRUGS (8)
  1. ORENCIA [Suspect]
     Active Substance: ABATACEPT
     Indication: Rheumatoid arthritis
     Route: 065
     Dates: start: 201705, end: 201709
  2. TOCILIZUMAB [Suspect]
     Active Substance: TOCILIZUMAB
     Indication: Rheumatoid arthritis
     Route: 065
     Dates: start: 201801, end: 201803
  3. XELJANZ [Suspect]
     Active Substance: TOFACITINIB CITRATE
     Indication: Rheumatoid arthritis
     Route: 065
     Dates: start: 201709, end: 201801
  4. METHOTREXATE [Suspect]
     Active Substance: METHOTREXATE
     Indication: Rheumatoid arthritis
     Route: 065
     Dates: start: 20171020
  5. METHOTREXATE [Suspect]
     Active Substance: METHOTREXATE
     Route: 065
     Dates: start: 20170925
  6. METHOTREXATE [Suspect]
     Active Substance: METHOTREXATE
     Route: 065
     Dates: start: 20170519
  7. METHOTREXATE [Suspect]
     Active Substance: METHOTREXATE
     Route: 065
     Dates: start: 20180416
  8. METHOTREXATE [Suspect]
     Active Substance: METHOTREXATE
     Route: 065

REACTIONS (1)
  - Atrial fibrillation [Recovered/Resolved]

NARRATIVE: CASE EVENT DATE: 20180904
